FAERS Safety Report 6962972-0 (Version None)
Quarter: 2010Q3

REPORT INFORMATION
  Report Type: 
  Country: None (occurrence: None)
  Receive Date: 20100902
  Receipt Date: 20100120
  Transmission Date: 20110219
  Serious: Yes (Other)
  Sender: FDA-Public Use
  Company Number: GB-ROCHE-722509

PATIENT

DRUGS (2)
  1. HERCEPTIN [Suspect]
     Route: 065
  2. LAPATINIB [Suspect]
     Indication: BREAST CANCER
     Route: 065

REACTIONS (2)
  - DISEASE PROGRESSION [None]
  - RASH [None]
